FAERS Safety Report 5833043-1 (Version None)
Quarter: 2008Q3

REPORT INFORMATION
  Report Type: 
  Country: None (occurrence: None)
  Receive Date: 20080805
  Receipt Date: 20080730
  Transmission Date: 20090109
  Serious: Yes (Life-Threatening)
  Sender: FDA-Public Use
  Company Number: FR-ASTRAZENECA-2008CG01147

PATIENT
  Age: 23694 Day
  Sex: Female

DRUGS (9)
  1. DIPRIVAN [Suspect]
     Indication: ANAESTHESIA
     Route: 042
     Dates: start: 20080421, end: 20080421
  2. CELOCURIN [Suspect]
     Indication: ANAESTHESIA
     Route: 042
     Dates: start: 20080421, end: 20080421
  3. ULTIVA [Concomitant]
     Indication: ANAESTHESIA
     Route: 042
     Dates: start: 20080421, end: 20080421
  4. FLECAINIDE ACETATE [Concomitant]
  5. ASPIRIN [Concomitant]
  6. LEXOMIL [Concomitant]
  7. CORGARD [Concomitant]
  8. RELPAX [Concomitant]
  9. AMLOR [Concomitant]

REACTIONS (2)
  - ANAPHYLACTIC SHOCK [None]
  - CARDIAC ARREST [None]
